FAERS Safety Report 6805394-5 (Version None)
Quarter: 2010Q2

REPORT INFORMATION
  Report Type: 
  Country: None (occurrence: None)
  Receive Date: 20100628
  Receipt Date: 20071205
  Transmission Date: 20101027
  Serious: No
  Sender: FDA-Public Use
  Company Number: US-PFIZER INC-2007092010

PATIENT
  Sex: Female
  Weight: 68.04 kg

DRUGS (3)
  1. GEODON [Suspect]
     Indication: BIPOLAR DISORDER
     Dates: start: 20070928, end: 20071016
  2. EFFEXOR [Concomitant]
     Dates: start: 20010101
  3. KLONOPIN [Concomitant]
     Dates: start: 20010101

REACTIONS (3)
  - HYPERSENSITIVITY [None]
  - PRURITUS GENERALISED [None]
  - SWELLING [None]
